FAERS Safety Report 9024309 (Version 2)
Quarter: 2013Q1

REPORT INFORMATION
  Report Type: Spontaneous
  Country: JP (occurrence: JP)
  Receive Date: 20130121
  Receipt Date: 20130201
  Transmission Date: 20140127
  Serious: Yes (Hospitalization, Other)
  Sender: FDA-Public Use
  Company Number: PHHY2012JP017968

PATIENT
  Sex: Female
  Weight: 47 kg

DRUGS (12)
  1. AFINITOR [Suspect]
     Indication: RENAL CELL CARCINOMA RECURRENT
     Dosage: 10 MG DAILY
     Route: 048
     Dates: start: 20111006, end: 20120223
  2. CHEMOTHERAPEUTICS [Concomitant]
     Indication: HYPERGLYCAEMIA
  3. GASTER D [Concomitant]
     Dosage: 20 MG, UNK
     Route: 048
  4. THYRADIN S [Concomitant]
     Indication: HYPOTHYROIDISM
     Dosage: 50 UG, UNK
     Route: 048
  5. MEVALOTIN [Concomitant]
     Indication: DYSLIPIDAEMIA
     Dosage: 10 MG, UNK
     Route: 048
  6. WYPAX [Concomitant]
     Indication: ANXIETY
     Dosage: 3 MG, UNK
     Route: 048
  7. NIFELANTERN CR [Concomitant]
     Indication: HYPERTENSION
     Dosage: 40 MG, UNK
     Route: 048
  8. DIBETOS [Concomitant]
     Indication: TYPE 2 DIABETES MELLITUS
     Dosage: 50 MG, UNK
     Route: 048
  9. ALMYLAR [Concomitant]
     Indication: HYPERTENSION
     Dosage: 25 MG, UNK
     Route: 048
  10. NATRIX [Concomitant]
     Indication: HYPERTENSION
     Dosage: 1 MG, UNK
     Route: 048
  11. BIGUANIDES [Concomitant]
     Indication: TYPE 2 DIABETES MELLITUS
     Dosage: UNK UKN, UNK
  12. PAMILCON [Concomitant]
     Indication: TYPE 2 DIABETES MELLITUS
     Dosage: 2.5 MG, UNK
     Route: 048
     Dates: end: 20120224

REACTIONS (12)
  - Diabetes mellitus [Unknown]
  - Hyperglycaemia [Recovered/Resolved]
  - Decreased appetite [Unknown]
  - Dehydration [Unknown]
  - Glycosylated haemoglobin increased [Unknown]
  - Glucose tolerance impaired [Unknown]
  - Thirst [Unknown]
  - Malaise [Unknown]
  - Blood potassium decreased [Unknown]
  - Haematocrit decreased [Unknown]
  - Blood creatinine increased [Unknown]
  - Haemoglobin decreased [Unknown]
